FAERS Safety Report 4691839-6 (Version None)
Quarter: 2005Q2

REPORT INFORMATION
  Report Type: 
  Country: None (occurrence: None)
  Receive Date: 20050615
  Receipt Date: 20050615
  Transmission Date: 20051028
  Serious: Yes (Life-Threatening)
  Sender: FDA-Public Use
  Company Number: None

PATIENT
  Age: 84 Year
  Sex: Female

DRUGS (2)
  1. DIGOXIN [Suspect]
     Indication: ATRIAL FIBRILLATION
     Dosage: 0.125 MG DAILY ORAL
     Route: 048
  2. ENALAPRIL 10 MG [Suspect]
     Indication: HYPERTENSION
     Dosage: 2010 MG NOON/HS ORAL
     Route: 048

REACTIONS (5)
  - ASTHENIA [None]
  - AZOTAEMIA [None]
  - BLOOD PRESSURE DECREASED [None]
  - HYPOVOLAEMIA [None]
  - MALAISE [None]
